FAERS Safety Report 24065319 (Version 1)
Quarter: 2024Q3

REPORT INFORMATION
  Report Type: Spontaneous
  Country: GB (occurrence: GB)
  Receive Date: 20240709
  Receipt Date: 20240709
  Transmission Date: 20241017
  Serious: Yes (Hospitalization, Other)
  Sender: TEVA
  Company Number: None

PATIENT
  Sex: Female

DRUGS (11)
  1. OMEPRAZOLE [Suspect]
     Active Substance: OMEPRAZOLE
     Indication: Dyspepsia
     Route: 065
     Dates: start: 20240103, end: 20240417
  2. BISOPROLOL [Concomitant]
     Active Substance: BISOPROLOL\BISOPROLOL FUMARATE
  3. DOXYCYCLINE [Concomitant]
     Active Substance: DOXYCYCLINE\DOXYCYCLINE HYCLATE
     Indication: Cough
  4. CANDESARTAN [Concomitant]
     Active Substance: CANDESARTAN
  5. AMLODIPINE [Concomitant]
     Active Substance: AMLODIPINE BESYLATE
  6. APIXABAN [Concomitant]
     Active Substance: APIXABAN
  7. DOXAZOSIN [Concomitant]
     Active Substance: DOXAZOSIN MESYLATE
  8. INVITA-D3 [Concomitant]
  9. ATORVASTATIN [Concomitant]
     Active Substance: ATORVASTATIN
  10. LOPERAMIDE [Concomitant]
     Active Substance: LOPERAMIDE
  11. LEVOTHYROXINE [Concomitant]
     Active Substance: LEVOTHYROXINE\LEVOTHYROXINE SODIUM

REACTIONS (8)
  - Hypocalcaemia [Unknown]
  - Hypokalaemia [Unknown]
  - Dehydration [Unknown]
  - Hypomagnesaemia [Recovered/Resolved]
  - Dyspepsia [Unknown]
  - Vomiting [Unknown]
  - Atrial fibrillation [Recovered/Resolved]
  - Lower respiratory tract infection [Unknown]
